FAERS Safety Report 9998009 (Version 1)
Quarter: 2014Q1

REPORT INFORMATION
  Report Type: Spontaneous
  Country: US (occurrence: US)
  Receive Date: 20140311
  Receipt Date: 20140311
  Transmission Date: 20141002
  Serious: Yes (Hospitalization)
  Sender: FDA-Public Use
  Company Number: US-B.I. PHARMACEUTICALS,INC./RIDGEFIELD-2014-BI-10153BP

PATIENT
  Age: 71 Year
  Sex: Female
  Weight: 55 kg

DRUGS (11)
  1. SPIRIVA [Suspect]
     Indication: CHRONIC OBSTRUCTIVE PULMONARY DISEASE
     Dosage: 18 MCG
     Route: 055
  2. METFORMIN [Concomitant]
     Route: 065
  3. PLETAL [Concomitant]
     Route: 065
  4. PLAVIX [Concomitant]
     Indication: THROMBOSIS
     Route: 065
  5. HYDROCHLOROTHIAZIDE [Concomitant]
     Indication: HYPERTENSION
     Route: 065
  6. TRICOR [Concomitant]
     Indication: BLOOD CHOLESTEROL INCREASED
     Route: 065
  7. WELLBUTRIN [Concomitant]
     Route: 065
  8. GABAPENTIN [Concomitant]
     Indication: NEUROPATHY PERIPHERAL
     Route: 065
  9. SIMVASTATIN [Concomitant]
     Indication: BLOOD CHOLESTEROL INCREASED
     Route: 065
  10. COZAAR [Concomitant]
     Indication: HYPERTENSION
     Route: 065
  11. ADALAT CC [Concomitant]
     Indication: HYPERTENSION
     Route: 065

REACTIONS (1)
  - Hip fracture [Recovered/Resolved]
